FAERS Safety Report 5501034-6 (Version None)
Quarter: 2007Q4

REPORT INFORMATION
  Report Type: 
  Country: None (occurrence: None)
  Receive Date: 20071029
  Receipt Date: 20071025
  Transmission Date: 20080405
  Serious: Yes (Death, Hospitalization, Other)
  Sender: FDA-Public Use
  Company Number: PHFR2007GB02538

PATIENT
  Age: 74 Year
  Sex: Male
  Weight: 67.6 kg

DRUGS (3)
  1. ZOMETA [Suspect]
     Indication: PROSTATE CANCER METASTATIC
     Dosage: 4 MG, ONCE/SINGLE
     Dates: start: 20070703, end: 20070703
  2. DEXAMETHASONE 0.5MG TAB [Concomitant]
     Indication: PROSTATE CANCER
     Dosage: 0.5 MG/DAY
     Route: 048
     Dates: start: 20070621
  3. CASODEX [Concomitant]
     Indication: PROSTATE CANCER
     Dosage: 50 MG/DAY
     Route: 048
     Dates: start: 20070621

REACTIONS (9)
  - AMNESIA [None]
  - CONFUSIONAL STATE [None]
  - DISEASE PROGRESSION [None]
  - HYPOCALCAEMIA [None]
  - HYPOKALAEMIA [None]
  - HYPOMAGNESAEMIA [None]
  - HYPONATRAEMIA [None]
  - HYPOPHOSPHATAEMIA [None]
  - WEIGHT DECREASED [None]
